FAERS Safety Report 9808790 (Version 1)
Quarter: 2014Q1

REPORT INFORMATION
  Report Type: Spontaneous
  Country: US (occurrence: US)
  Receive Date: 20140110
  Receipt Date: 20140110
  Transmission Date: 20141002
  Serious: Yes (Death)
  Sender: FDA-Public Use
  Company Number: US-PFIZER INC-2014007655

PATIENT
  Age: 50 Year
  Sex: Female

DRUGS (4)
  1. MORPHINE SULFATE [Suspect]
  2. SERTRALINE HCL [Suspect]
  3. DIAZEPAM [Suspect]
  4. TRAMADOL [Suspect]

REACTIONS (1)
  - Drug abuse [Fatal]
